FAERS Safety Report 9621035 (Version 5)
Quarter: 2016Q1

REPORT INFORMATION
  Report Type: Spontaneous
  Country: JP (occurrence: JP)
  Receive Date: 20131015
  Receipt Date: 20160324
  Transmission Date: 20160526
  Serious: Yes (Other)
  Sender: FDA-Public Use
  Company Number: PHHY2013JP114661

PATIENT
  Age: 73 Year
  Sex: Female

DRUGS (1)
  1. IMATINIB [Suspect]
     Active Substance: IMATINIB
     Indication: CHRONIC MYELOID LEUKAEMIA
     Dosage: 400 MG, QD
     Route: 048
     Dates: start: 201001

REACTIONS (5)
  - Gastric antral vascular ectasia [Unknown]
  - Iron deficiency anaemia [Recovered/Resolved]
  - Vasodilatation [Unknown]
  - Gastric haemorrhage [Unknown]
  - Haematochezia [Unknown]

NARRATIVE: CASE EVENT DATE: 201005
